FAERS Safety Report 7496362-1 (Version None)
Quarter: 2011Q2

REPORT INFORMATION
  Report Type: 
  Country: None (occurrence: None)
  Receive Date: 20110513
  Receipt Date: 20110502
  Transmission Date: 20111010
  Serious: Yes (Hospitalization, Other)
  Sender: FDA-Public Use
  Company Number: 2010SP046934

PATIENT
  Age: 26 Year
  Sex: Female
  Weight: 63.5036 kg

DRUGS (6)
  1. IBUPROFEN [Concomitant]
  2. COREG [Concomitant]
  3. NUVARING [Suspect]
     Indication: MUSCLE SPASMS
     Dates: start: 20060801, end: 20081101
  4. NUVARING [Suspect]
     Indication: HAEMORRHAGE
     Dates: start: 20060801, end: 20081101
  5. NUVARING [Suspect]
     Indication: MENSTRUAL CYCLE MANAGEMENT
     Dates: start: 20060801, end: 20081101
  6. TYLENOL-500 [Concomitant]

REACTIONS (18)
  - HEAD INJURY [None]
  - MENINGIOMA [None]
  - TEMPOROMANDIBULAR JOINT SYNDROME [None]
  - ATTENTION DEFICIT/HYPERACTIVITY DISORDER [None]
  - VERTIGO [None]
  - ROAD TRAFFIC ACCIDENT [None]
  - DISTURBANCE IN ATTENTION [None]
  - ABDOMINAL DISTENSION [None]
  - HEADACHE [None]
  - POST CONCUSSION SYNDROME [None]
  - THROMBOSIS [None]
  - PULMONARY EMBOLISM [None]
  - MEMORY IMPAIRMENT [None]
  - ADJUSTMENT DISORDER WITH ANXIETY [None]
  - UTERINE LEIOMYOMA [None]
  - TACHYCARDIA [None]
  - OCCIPITAL NEURALGIA [None]
  - PELVIC DISCOMFORT [None]
